FAERS Safety Report 18546778 (Version 1)
Quarter: 2020Q4

REPORT INFORMATION
  Report Type: Spontaneous
  Country: CN (occurrence: CN)
  Receive Date: 20201125
  Receipt Date: 20201125
  Transmission Date: 20210114
  Serious: Yes (Other)
  Sender: FDA-Public Use
  Company Number: CN-ASTRAZENECA-2020SF54693

PATIENT
  Age: 28855 Day
  Sex: Male
  Weight: 70 kg

DRUGS (6)
  1. PULMICORT RESPULES [Suspect]
     Active Substance: BUDESONIDE
     Indication: CHRONIC OBSTRUCTIVE PULMONARY DISEASE
     Dosage: 2.0 MG, 3 TIMES PER DAY
     Route: 055
     Dates: start: 20201111, end: 20201111
  2. VENTOLIN [Suspect]
     Active Substance: ALBUTEROL SULFATE
     Indication: CHRONIC OBSTRUCTIVE PULMONARY DISEASE
     Dosage: 2.5 ML, 3 TIMES PER DAY, DOSAGE FORM: MIXTURE
     Route: 065
     Dates: start: 20201111, end: 20201111
  3. VENTOLIN [Suspect]
     Active Substance: ALBUTEROL SULFATE
     Indication: CHRONIC OBSTRUCTIVE PULMONARY DISEASE
     Dosage: 2.5 ML, 3 TIMES PER DAY, DOSAGE FORM: MIXTURE
     Route: 065
     Dates: start: 20201111, end: 20201111
  4. PULMICORT RESPULES [Suspect]
     Active Substance: BUDESONIDE
     Indication: BRONCHITIS
     Dosage: 2.0 MG, 3 TIMES PER DAY
     Route: 055
     Dates: start: 20201111, end: 20201111
  5. FLUMUCIL [Suspect]
     Active Substance: ACETYLCYSTEINE
     Indication: CHRONIC OBSTRUCTIVE PULMONARY DISEASE
     Dosage: 3.0 ML, 3 TIMES PER DAY DOSAGE, FORM: MIXTURE
     Route: 065
     Dates: start: 20201111, end: 20201111
  6. FLUMUCIL [Suspect]
     Active Substance: ACETYLCYSTEINE
     Indication: CHRONIC OBSTRUCTIVE PULMONARY DISEASE
     Dosage: 3.0 ML, 3 TIMES PER DAY DOSAGE, FORM: MIXTURE
     Route: 065
     Dates: start: 20201111, end: 20201111

REACTIONS (2)
  - Oxygen saturation decreased [Recovering/Resolving]
  - Dyspnoea [Recovering/Resolving]

NARRATIVE: CASE EVENT DATE: 20201111
